FAERS Safety Report 4736365-0 (Version None)
Quarter: 2005Q3

REPORT INFORMATION
  Report Type: 
  Country: None (occurrence: None)
  Receive Date: 20050804
  Receipt Date: 20050723
  Transmission Date: 20060218
  Serious: Yes (Other)
  Sender: FDA-Public Use
  Company Number: 2005105241

PATIENT
  Age: 22 Year
  Sex: Male
  Weight: 58.0604 kg

DRUGS (1)
  1. VISINE-A [Suspect]
     Indication: EYE PRURITUS
     Dosage: 2 DROPS ONCE, OPHTHALMIC
     Route: 047
     Dates: start: 20050722, end: 20050723

REACTIONS (3)
  - DRUG HYPERSENSITIVITY [None]
  - PHOTOSENSITIVITY REACTION [None]
  - REACTION TO PRESERVATIVES [None]
